FAERS Safety Report 5279579-6 (Version None)
Quarter: 2007Q1

REPORT INFORMATION
  Report Type: 
  Country: None (occurrence: None)
  Receive Date: 20070323
  Receipt Date: 20070201
  Transmission Date: 20070707
  Serious: Yes (Death)
  Sender: FDA-Public Use
  Company Number: 235610

PATIENT
  Age: 52 Year
  Sex: Female
  Weight: 59 kg

DRUGS (24)
  1. AVASTIN [Suspect]
     Indication: COLON CANCER
     Dosage: 590 MG, Q4W, INTRAVENOUS
     Route: 042
     Dates: start: 20051128
  2. DIFLUCAN [Concomitant]
  3. MILES MAGIC MIXTURE (GLYCEROL, H20, LIDOCAINE, NYSTATIN, WATER) [Concomitant]
  4. DILAUDID [Concomitant]
  5. ZOVIRAX [Concomitant]
  6. VISCOUS LIDOCAINE (LIDOCAINE HYDROCHLORIDE) [Concomitant]
  7. ZOVIRAX [Concomitant]
  8. VISCOUS LIDOCAINE (LIDOCAINE HYDROCHLORIDE) [Concomitant]
  9. AMITRIPTYLINE HCL [Concomitant]
  10. SANDOSTIN (OCTREOTIDE ACETATE) [Concomitant]
  11. FENTANYL CITRATE [Concomitant]
  12. PHENERGAN (PROMETHAZINE HYDROCHLORIDE) [Concomitant]
  13. POTASSIUM (POTASSIUM NOS) [Concomitant]
  14. BUSPAR [Concomitant]
  15. SPIRONOLACTONE [Concomitant]
  16. PAREGORIC (PAREGORIC) [Concomitant]
  17. ZITHROMAX [Concomitant]
  18. MEGACE [Concomitant]
  19. MARINOL [Concomitant]
  20. SYNTHROID [Concomitant]
  21. LOMOTIL (ATROPINE SULFATE, DIPHENHYDRAMINE HYDROCHLORIDE) [Concomitant]
  22. CLARITIN [Concomitant]
  23. ACYCLOVIR [Concomitant]
  24. BENADRYL [Concomitant]

REACTIONS (1)
  - NASAL SEPTUM PERFORATION [None]
